FAERS Safety Report 8983677 (Version 2)
Quarter: 2013Q1

REPORT INFORMATION
  Report Type: Report from Study
  Country: GB (occurrence: GB)
  Receive Date: 20121224
  Receipt Date: 20130225
  Transmission Date: 20140127
  Serious: Yes (Other)
  Sender: FDA-Public Use
  Company Number: GB-AMGEN-GBRCT2012082360

PATIENT
  Age: 60 Year
  Sex: Female
  Weight: 64 kg

DRUGS (3)
  1. ETANERCEPT [Suspect]
     Indication: RHEUMATOID ARTHRITIS
     Dosage: 25 MG, 2 TIMES/WK
     Dates: start: 20020716, end: 20120124
  2. HYDROXYCHLOROQUINE [Concomitant]
     Dosage: UNK
  3. AZATHIOPRINE [Concomitant]
     Dosage: UNK

REACTIONS (1)
  - Breast cancer [Recovered/Resolved]
